FAERS Safety Report 4859716-5 (Version None)
Quarter: 2005Q4

REPORT INFORMATION
  Report Type: 
  Country: None (occurrence: None)
  Receive Date: 20051219
  Receipt Date: 20051116
  Transmission Date: 20060501
  Serious: Yes (Other)
  Sender: FDA-Public Use
  Company Number: JP-BRISTOL-MYERS SQUIBB COMPANY-13182449

PATIENT
  Age: 76 Year
  Sex: Male

DRUGS (2)
  1. PARAPLATIN [Suspect]
     Indication: SMALL CELL LUNG CANCER STAGE UNSPECIFIED
     Route: 042
  2. LASTET [Suspect]
     Indication: SMALL CELL LUNG CANCER STAGE UNSPECIFIED
     Route: 042

REACTIONS (3)
  - ACUTE RESPIRATORY DISTRESS SYNDROME [None]
  - NEUTROPHIL COUNT DECREASED [None]
  - SYSTEMIC INFLAMMATORY RESPONSE SYNDROME [None]
